FAERS Safety Report 7498879-2 (Version None)
Quarter: 2011Q2

REPORT INFORMATION
  Report Type: 
  Country: None (occurrence: None)
  Receive Date: 20110516
  Receipt Date: 20110503
  Transmission Date: 20111010
  Serious: Yes (Hospitalization, Other)
  Sender: FDA-Public Use
  Company Number: 2011MA004898

PATIENT
  Age: 55 Year
  Sex: Female

DRUGS (1)
  1. FLUOXETINE [Suspect]
     Indication: BIPOLAR DISORDER
     Dosage: 20 MG, PO
     Route: 048

REACTIONS (17)
  - HYPOKALAEMIA [None]
  - FLUSHING [None]
  - SLOW RESPONSE TO STIMULI [None]
  - HYPOMAGNESAEMIA [None]
  - BLOOD THYROID STIMULATING HORMONE INCREASED [None]
  - OVERDOSE [None]
  - TORSADE DE POINTES [None]
  - VOMITING [None]
  - TREATMENT NONCOMPLIANCE [None]
  - NAUSEA [None]
  - VENTRICULAR FIBRILLATION [None]
  - COGNITIVE DISORDER [None]
  - SUICIDE ATTEMPT [None]
  - DRY MOUTH [None]
  - MALAISE [None]
  - MYDRIASIS [None]
  - BLOOD PHOSPHORUS DECREASED [None]
